FAERS Safety Report 25755993 (Version 1)
Quarter: 2025Q3

REPORT INFORMATION
  Report Type: Spontaneous
  Country: US (occurrence: None)
  Receive Date: 20250902
  Receipt Date: 20250902
  Transmission Date: 20251020
  Serious: Yes (Disabling)
  Sender: FDA-CTU
  Company Number: None

PATIENT
  Age: 41 Year
  Sex: Female
  Weight: 54.9 kg

DRUGS (9)
  1. BUPROPION HYDROCHLORIDE SR [Suspect]
     Active Substance: BUPROPION HYDROCHLORIDE
     Indication: Ex-tobacco user
     Dosage: OTHER QUANTITY : 1 TABLET(S);?FREQUENCY : TWICE A DAY;?
     Route: 048
     Dates: start: 20250302, end: 20250902
  2. BUPROPION HYDROCHLORIDE [Concomitant]
     Active Substance: BUPROPION HYDROCHLORIDE
  3. PAXIL [Concomitant]
     Active Substance: PAROXETINE HYDROCHLORIDE
  4. Estradiol 1.75mg [Concomitant]
  5. Progesterone 200mg [Concomitant]
  6. Metoprolol succ 25mg [Concomitant]
  7. Medical Marijuana Patient [Concomitant]
  8. Kratom 7-Oh [Concomitant]
  9. Sleep Support Complex [Concomitant]

REACTIONS (3)
  - General physical health deterioration [None]
  - Drug interaction [None]
  - Drug level increased [None]

NARRATIVE: CASE EVENT DATE: 20250820
